FAERS Safety Report 5164275-6 (Version None)
Quarter: 2006Q4

REPORT INFORMATION
  Report Type: 
  Country: None (occurrence: None)
  Receive Date: 20061128
  Receipt Date: 20061128
  Transmission Date: 20070319
  Serious: No
  Sender: FDA-Public Use
  Company Number: None

PATIENT
  Age: 79 Year
  Sex: Female
  Weight: 60.3284 kg

DRUGS (2)
  1. XYLOCAINE TOPICAL FILM [Suspect]
     Indication: CATARACT OPERATION
     Dosage: PRE AND POST OP, 046
     Dates: start: 20061024
  2. TETRACAINE POLYGYL STERILE OPHTHALMIC SOLUTION [Suspect]
     Indication: CATARACT OPERATION
     Dosage: 1 DROP PRE OP X 2, 046
     Dates: start: 20061024

REACTIONS (3)
  - CATARACT OPERATION COMPLICATION [None]
  - EYE IRRITATION [None]
  - TOXIC ANTERIOR SEGMENT SYNDROME [None]
